FAERS Safety Report 5716759-7 (Version None)
Quarter: 2008Q2

REPORT INFORMATION
  Report Type: 
  Country: None (occurrence: None)
  Receive Date: 20080424
  Receipt Date: 20070625
  Transmission Date: 20081010
  Serious: No
  Sender: FDA-Public Use
  Company Number: US-BAYER-200711778BWH

PATIENT
  Age: 73 Year
  Sex: Male

DRUGS (8)
  1. LEVITRA [Suspect]
     Indication: ERECTILE DYSFUNCTION
     Dosage: TOTAL DAILY DOSE: 2.5 MG  UNIT DOSE: 2.5 MG
     Route: 048
     Dates: start: 20070525
  2. LEVITRA [Suspect]
     Dosage: TOTAL DAILY DOSE: 10 MG  UNIT DOSE: 10 MG
     Route: 048
     Dates: start: 20070101
  3. LEVITRA [Suspect]
     Dosage: TOTAL DAILY DOSE: 2.5 MG  UNIT DOSE: 2.5 MG
     Route: 048
     Dates: start: 20070527
  4. FELODIPINE [Concomitant]
     Dates: start: 19960101
  5. FUROSEMIDE [Concomitant]
     Dates: start: 19960101
  6. ZOCOR [Concomitant]
     Dates: start: 19960101
  7. TOPROL-XL [Concomitant]
     Dates: start: 19960101
  8. LOTREL [Concomitant]
     Dates: start: 20070605

REACTIONS (1)
  - ERECTILE DYSFUNCTION [None]
